FAERS Safety Report 7546397-5 (Version None)
Quarter: 2011Q2

REPORT INFORMATION
  Report Type: 
  Country: None (occurrence: None)
  Receive Date: 20110614
  Receipt Date: 20110609
  Transmission Date: 20111010
  Serious: Yes (Other)
  Sender: FDA-Public Use
  Company Number: JP-PFIZER INC-2011126505

PATIENT
  Age: 76 Year
  Sex: Male

DRUGS (1)
  1. HALCION [Suspect]
     Dosage: UNK

REACTIONS (2)
  - MYOGLOBINURIA [None]
  - BLOOD CREATINE PHOSPHOKINASE INCREASED [None]
